FAERS Safety Report 17535541 (Version 1)
Quarter: 2020Q1

REPORT INFORMATION
  Report Type: Spontaneous
  Country: FR (occurrence: FR)
  Receive Date: 20200313
  Receipt Date: 20200313
  Transmission Date: 20200409
  Serious: Yes (Hospitalization)
  Sender: FDA-Public Use
  Company Number: FR-UCBSA-2020009398

PATIENT
  Age: 72 Year
  Sex: Male

DRUGS (2)
  1. BELUSTINE [Suspect]
     Active Substance: LOMUSTINE
     Indication: NEOPLASM MALIGNANT
     Dosage: 5 WEEK
     Route: 048
     Dates: end: 20200109
  2. KEPPRA [Suspect]
     Active Substance: LEVETIRACETAM
     Indication: SEIZURE
     Dosage: UNK
     Route: 048
     Dates: start: 20200207, end: 20200213

REACTIONS (1)
  - Neutropenia [Not Recovered/Not Resolved]

NARRATIVE: CASE EVENT DATE: 20200214
